FAERS Safety Report 14698067 (Version 1)
Quarter: 2018Q1

REPORT INFORMATION
  Report Type: Spontaneous
  Country: DE (occurrence: DE)
  Receive Date: 20180330
  Receipt Date: 20180330
  Transmission Date: 20180509
  Serious: Yes (Other)
  Sender: FDA-Public Use
  Company Number: DE-CIPLA LTD.-2018DE13178

PATIENT

DRUGS (16)
  1. OXALIPLATIN. [Suspect]
     Active Substance: OXALIPLATIN
     Indication: THYMOMA MALIGNANT RECURRENT
     Dosage: 130 MG/M2 I.V. DAY 1
     Route: 042
  2. IFOSFAMIDE. [Suspect]
     Active Substance: IFOSFAMIDE
     Indication: THYMOMA MALIGNANT RECURRENT
     Dosage: 1,200 MG/M2 DAYS 1-5
     Route: 065
  3. DOXORUBICIN HYDROCHLORIDE. [Suspect]
     Active Substance: DOXORUBICIN HYDROCHLORIDE
     Indication: THYMOMA MALIGNANT RECURRENT
     Dosage: UNK
     Route: 065
  4. PACLITAXEL. [Suspect]
     Active Substance: PACLITAXEL
     Indication: THYMOMA MALIGNANT RECURRENT
     Dosage: 175 MG/M2 DAY 1
     Route: 065
  5. ETOPOSIDE. [Suspect]
     Active Substance: ETOPOSIDE
     Indication: THYMOMA MALIGNANT RECURRENT
     Dosage: 75 MG/M2 DAYS 1-5
     Route: 065
  6. CAPECITABINE. [Suspect]
     Active Substance: CAPECITABINE
     Indication: THYMOMA MALIGNANT RECURRENT
     Dosage: 850 MG/M2 TWICE DAILY,DAYS 1-22
     Route: 048
  7. EPIRUBICIN [Suspect]
     Active Substance: EPIRUBICIN
     Indication: THYMOMA MALIGNANT RECURRENT
     Dosage: 50 MG/M2,DAY 1
     Route: 042
  8. CISPLATIN. [Suspect]
     Active Substance: CISPLATIN
     Indication: THYMOMA MALIGNANT RECURRENT
     Dosage: 20 MG/M2 DAYS 1-5
     Route: 065
  9. IFOSFAMIDE. [Suspect]
     Active Substance: IFOSFAMIDE
     Dosage: UNK
  10. VINCRISTINE [Suspect]
     Active Substance: VINCRISTINE
     Indication: THYMOMA MALIGNANT RECURRENT
     Dosage: UNK
     Route: 065
  11. CETUXIMAB. [Suspect]
     Active Substance: CETUXIMAB
     Indication: THYMOMA MALIGNANT RECURRENT
     Dosage: UNK
     Route: 065
  12. CYCLOPHOSPHAMIDE. [Suspect]
     Active Substance: CYCLOPHOSPHAMIDE
     Indication: THYMOMA MALIGNANT RECURRENT
     Dosage: UNK
     Route: 065
  13. FOLINIC ACID [Suspect]
     Active Substance: LEUCOVORIN
     Indication: THYMOMA MALIGNANT RECURRENT
     Dosage: UNK
     Route: 065
  14. GEMCITABINE [Suspect]
     Active Substance: GEMCITABINE\GEMCITABINE HYDROCHLORIDE
     Indication: THYMOMA MALIGNANT RECURRENT
     Dosage: UNK, CYCLICAL
     Route: 065
  15. IRINOTECAN [Suspect]
     Active Substance: IRINOTECAN
     Indication: THYMOMA MALIGNANT RECURRENT
     Dosage: UNK
     Route: 065
  16. FLUOROURACIL. [Suspect]
     Active Substance: FLUOROURACIL
     Indication: THYMOMA MALIGNANT RECURRENT
     Dosage: UNK
     Route: 065

REACTIONS (5)
  - Malignant neoplasm progression [Unknown]
  - Polyneuropathy [Unknown]
  - Toxicity to various agents [Unknown]
  - Blood bilirubin increased [Unknown]
  - Hypercalcaemia [Unknown]
